FAERS Safety Report 5883294-5 (Version None)
Quarter: 2008Q3

REPORT INFORMATION
  Report Type: 
  Country: None (occurrence: None)
  Receive Date: 20080915
  Receipt Date: 20080818
  Transmission Date: 20090109
  Serious: No
  Sender: FDA-Public Use
  Company Number: US-BAYER-200712872BCC

PATIENT
  Age: 68 Year
  Sex: Female
  Weight: 68 kg

DRUGS (4)
  1. ALEVE (CAPLET) [Suspect]
     Indication: ARTHRALGIA
     Route: 048
     Dates: end: 20060101
  2. SYNTHROID [Concomitant]
  3. CENTRUM SILVER [Concomitant]
  4. ASPIRIN [Concomitant]

REACTIONS (3)
  - ALLERGY TO CHEMICALS [None]
  - PRURITUS [None]
  - URTICARIA [None]
